FAERS Safety Report 22344467 (Version 8)
Quarter: 2023Q4

REPORT INFORMATION
  Report Type: Report from Study
  Country: US (occurrence: US)
  Receive Date: 20230519
  Receipt Date: 20231215
  Transmission Date: 20240110
  Serious: No
  Sender: FDA-Public Use
  Company Number: US-002147023-NVSC2023US112056

PATIENT
  Sex: Female

DRUGS (2)
  1. KESIMPTA [Suspect]
     Active Substance: OFATUMUMAB
     Indication: Relapsing multiple sclerosis
     Dosage: UNK
     Route: 065
     Dates: start: 20230314
  2. PROZAC [Suspect]
     Active Substance: FLUOXETINE HYDROCHLORIDE
     Indication: Psychiatric symptom
     Dosage: UNK
     Route: 065

REACTIONS (8)
  - Brain fog [Unknown]
  - Somnolence [Unknown]
  - Fatigue [Unknown]
  - Hypoaesthesia [Unknown]
  - Paraesthesia [Unknown]
  - Disturbance in attention [Unknown]
  - Memory impairment [Unknown]
  - Injection site haemorrhage [Recovered/Resolved]
